FAERS Safety Report 24283836 (Version 1)
Quarter: 2024Q3

REPORT INFORMATION
  Report Type: Spontaneous
  Country: US (occurrence: None)
  Receive Date: 20240905
  Receipt Date: 20240905
  Transmission Date: 20241017
  Serious: Yes (Other)
  Sender: ASTRAZENECA
  Company Number: 2024A199135

PATIENT
  Age: 53 Year
  Sex: Female
  Weight: 122.5 kg

DRUGS (5)
  1. CRESTOR [Suspect]
     Active Substance: ROSUVASTATIN CALCIUM
     Route: 048
  2. VYNDAMAX [Suspect]
     Active Substance: TAFAMIDIS
     Indication: Essential hypertension
     Route: 048
     Dates: start: 20240702
  3. XANAX [Concomitant]
     Active Substance: ALPRAZOLAM
     Route: 048
  4. LYRICA [Concomitant]
     Active Substance: PREGABALIN
     Route: 048
  5. LISINOPRIL [Concomitant]
     Active Substance: LISINOPRIL

REACTIONS (8)
  - Cardiac amyloidosis [Unknown]
  - Essential hypertension [Unknown]
  - Fatigue [Unknown]
  - Arthralgia [Unknown]
  - Dyspnoea [Unknown]
  - Asthenia [Unknown]
  - Contraindicated product administered [Unknown]
  - Drug interaction [Unknown]

NARRATIVE: CASE EVENT DATE: 20240705
